FAERS Safety Report 9492019 (Version 2)
Quarter: 2013Q3

REPORT INFORMATION
  Report Type: Spontaneous
  Country: US (occurrence: US)
  Receive Date: 20130830
  Receipt Date: 20130919
  Transmission Date: 20140515
  Serious: Yes (Other)
  Sender: FDA-Public Use
  Company Number: US-TEVA-429398USA

PATIENT
  Age: 39 Year
  Sex: Female
  Weight: 68.55 kg

DRUGS (7)
  1. PARAGARD 380A [Suspect]
     Indication: CONTRACEPTION
     Route: 015
     Dates: start: 20130814
  2. GLUCOSAMINE [Concomitant]
     Indication: ARTHRITIS
     Dosage: 200 MILLIGRAM DAILY;
  3. PLAQUENIL [Concomitant]
     Indication: RHEUMATOID ARTHRITIS
     Dosage: 200 MILLIGRAM DAILY;
     Route: 048
  4. PLAQUENIL [Concomitant]
     Indication: DEPRESSION
     Dosage: 10 MILLIGRAM DAILY;
     Route: 048
  5. MELOXICAM [Concomitant]
     Dosage: 15 MILLIGRAM DAILY;
     Route: 048
  6. ZANTAC [Concomitant]
     Dosage: 150
  7. FISH OIL [Concomitant]
     Indication: MEDICAL DIET

REACTIONS (1)
  - Device dislocation [Recovered/Resolved]
